FAERS Safety Report 16212962 (Version 7)
Quarter: 2022Q1

REPORT INFORMATION
  Report Type: Spontaneous
  Country: US (occurrence: US)
  Receive Date: 20190418
  Receipt Date: 20220120
  Transmission Date: 20220423
  Serious: Yes (Other)
  Sender: FDA-Public Use
  Company Number: US-BIOMARINAP-US-2019-123127

PATIENT
  Age: 10 Year
  Sex: Female

DRUGS (3)
  1. ALDURAZYME [Suspect]
     Active Substance: LARONIDASE
     Indication: Mucopolysaccharidosis I
     Dosage: 20.30, UNK, Q1
     Route: 041
     Dates: start: 20181223
  2. ALDURAZYME [Suspect]
     Active Substance: LARONIDASE
     Dosage: 20.30, UNK, Q1
     Route: 041
  3. ALDURAZYME [Suspect]
     Active Substance: LARONIDASE
     Dosage: 26.1 MILLIGRAM, QW
     Route: 042
     Dates: start: 20200810

REACTIONS (10)
  - Pneumonia [Not Recovered/Not Resolved]
  - Clostridium difficile infection [Not Recovered/Not Resolved]
  - Upper respiratory tract infection [Not Recovered/Not Resolved]
  - Illness [Not Recovered/Not Resolved]
  - Cardiac valve disease [Unknown]
  - Hypertension [Unknown]
  - Malaise [Unknown]
  - Headache [Recovered/Resolved]
  - Sinus disorder [Recovering/Resolving]
  - Exposure to SARS-CoV-2 [Not Recovered/Not Resolved]

NARRATIVE: CASE EVENT DATE: 20190101
